FAERS Safety Report 4495325-8 (Version None)
Quarter: 2004Q4

REPORT INFORMATION
  Report Type: 
  Country: None (occurrence: None)
  Receive Date: 20041108
  Receipt Date: 20041101
  Transmission Date: 20050328
  Serious: Yes (Death)
  Sender: FDA-Public Use
  Company Number: US-JNJFOC-20040909116

PATIENT
  Age: 73 Year
  Sex: Female

DRUGS (4)
  1. DURAGESIC [Suspect]
     Indication: CANCER PAIN
     Route: 062
  2. DILAUDID [Concomitant]
     Indication: PAIN
     Route: 049
  3. ATIVAN [Concomitant]
     Indication: AGITATION
     Route: 049
  4. IBUPROFEN [Concomitant]
     Indication: PAIN
     Route: 054

REACTIONS (3)
  - HEPATIC NEOPLASM MALIGNANT [None]
  - MALIGNANT NEOPLASM PROGRESSION [None]
  - METASTASES TO BONE [None]
